FAERS Safety Report 5382801-9 (Version None)
Quarter: 2007Q3

REPORT INFORMATION
  Report Type: 
  Country: None (occurrence: None)
  Receive Date: 20070705
  Receipt Date: 20070627
  Transmission Date: 20080115
  Serious: Yes (Death)
  Sender: FDA-Public Use
  Company Number: 20073879

PATIENT
  Sex: Female

DRUGS (5)
  1. LIORESAL [Suspect]
     Indication: MUSCLE SPASTICITY
     Dosage: 67.53 MCG, DAILY, INTRATHECAL
     Route: 037
  2. MORPHINE SULFAT 20 MG/ML [Concomitant]
  3. BUPIVACAINE 40 MG/ML [Concomitant]
  4. DROPERIDOL 400 MCG/ML [Concomitant]
  5. CLONIDINE 300 MCG/ML [Concomitant]

REACTIONS (1)
  - CANCER PAIN [None]
